FAERS Safety Report 10083635 (Version 1)
Quarter: 2014Q2

REPORT INFORMATION
  Report Type: Spontaneous
  Country: US (occurrence: None)
  Receive Date: 20140416
  Receipt Date: 20140416
  Transmission Date: 20141212
  Serious: Yes (Other)
  Sender: FDA-Public Use
  Company Number: None

PATIENT
  Age: 23 Year
  Sex: Female
  Weight: 54.43 kg

DRUGS (3)
  1. DIVALPROEX SODIUM [Suspect]
     Indication: EPILEPSY
     Route: 048
     Dates: start: 20090829, end: 20090914
  2. ARMOUR THYROID [Concomitant]
  3. DEPAKOTE ER [Concomitant]

REACTIONS (1)
  - Condition aggravated [None]
